FAERS Safety Report 7907013-3 (Version None)
Quarter: 2011Q4

REPORT INFORMATION
  Report Type: 
  Country: None (occurrence: None)
  Receive Date: 20111110
  Receipt Date: 20111102
  Transmission Date: 20120403
  Serious: Yes (Hospitalization)
  Sender: FDA-Public Use
  Company Number: US-MERCK-1102USA01700

PATIENT
  Age: 67 Year
  Sex: Female
  Weight: 82 kg

DRUGS (5)
  1. LISINOPRIL [Concomitant]
     Route: 048
     Dates: start: 19900101
  2. FOSAMAX [Suspect]
     Indication: OSTEOPOROSIS
     Route: 048
     Dates: start: 19960101, end: 20080101
  3. VITAMIN E [Concomitant]
     Route: 048
  4. CELEBREX [Concomitant]
     Route: 048
     Dates: start: 19950101
  5. FOSAMAX PLUS D [Suspect]
     Indication: OSTEOPOROSIS
     Route: 048
     Dates: start: 20071217

REACTIONS (32)
  - ANAEMIA POSTOPERATIVE [None]
  - TYPE 2 DIABETES MELLITUS [None]
  - PROCEDURAL HYPOTENSION [None]
  - CONTUSION [None]
  - HAEMORRHAGIC ANAEMIA [None]
  - FOOT FRACTURE [None]
  - RENAL FAILURE [None]
  - JOINT EFFUSION [None]
  - BLOOD PRESSURE INCREASED [None]
  - CATARACT [None]
  - VOMITING [None]
  - OCCULT BLOOD POSITIVE [None]
  - GLAUCOMA [None]
  - ARTHRALGIA [None]
  - DIVERTICULITIS [None]
  - MYALGIA [None]
  - FOOD POISONING [None]
  - MELAENA [None]
  - COLONIC POLYP [None]
  - NAUSEA [None]
  - FALL [None]
  - EXOSTOSIS [None]
  - OSTEOARTHRITIS [None]
  - DYSURIA [None]
  - FOOT DEFORMITY [None]
  - TENDONITIS [None]
  - FEMUR FRACTURE [None]
  - POSTOPERATIVE FEVER [None]
  - ENTEROCOLITIS INFECTIOUS [None]
  - ABDOMINAL PAIN LOWER [None]
  - OBESITY [None]
  - HERPES ZOSTER [None]
